FAERS Safety Report 20665881 (Version 1)
Quarter: 2022Q2

REPORT INFORMATION
  Report Type: Spontaneous
  Country: US (occurrence: US)
  Receive Date: 20220402
  Receipt Date: 20220402
  Transmission Date: 20220721
  Serious: Yes (Other)
  Sender: FDA-Public Use
  Company Number: US-TEVA-2022-US-2022334

PATIENT
  Age: 58 Year
  Sex: Female

DRUGS (1)
  1. QVAR REDIHALER [Suspect]
     Active Substance: BECLOMETHASONE DIPROPIONATE
     Indication: Product used for unknown indication
     Route: 065
     Dates: start: 2008

REACTIONS (8)
  - Haemorrhage [Not Recovered/Not Resolved]
  - Device delivery system issue [Unknown]
  - Accidental exposure to product [Unknown]
  - Intraocular pressure increased [Not Recovered/Not Resolved]
  - Contusion [Not Recovered/Not Resolved]
  - Bone density decreased [Unknown]
  - Osteoporosis [Unknown]
  - Incorrect dose administered by device [Unknown]

NARRATIVE: CASE EVENT DATE: 20190101
